FAERS Safety Report 23561607 (Version 2)
Quarter: 2024Q1

REPORT INFORMATION
  Report Type: Report from Study
  Country: US (occurrence: US)
  Receive Date: 20240225
  Receipt Date: 20240324
  Transmission Date: 20240410
  Serious: Yes (Other)
  Sender: FDA-Public Use
  Company Number: US-DRL-USA-CLI/USA/24/0002915

PATIENT
  Age: 25 Year
  Sex: Female

DRUGS (1)
  1. ZENATANE [Suspect]
     Active Substance: ISOTRETINOIN
     Indication: Acne
     Dosage: BID
     Dates: start: 20231108, end: 20240213

REACTIONS (1)
  - Exposure during pregnancy [Unknown]
